FAERS Safety Report 8358257-0 (Version None)
Quarter: 2012Q2

REPORT INFORMATION
  Report Type: 
  Country: None (occurrence: None)
  Receive Date: 20120514
  Receipt Date: 20120511
  Transmission Date: 20120825
  Serious: Yes (Death, Hospitalization)
  Sender: FDA-Public Use
  Company Number: AU-B.I. PHARMACEUTICALS,INC./RIDGEFIELD-2012-AU-00233AU

PATIENT
  Sex: Female

DRUGS (7)
  1. PRADAXA [Suspect]
     Indication: ATRIAL FIBRILLATION
     Dosage: 220 MG
     Dates: end: 20111116
  2. METFORMIN HCL [Concomitant]
  3. DIGOXIN [Concomitant]
  4. PERINDOPRIL ERBUMINE [Concomitant]
  5. DIAMICRON [Concomitant]
  6. LORATADINE [Concomitant]
  7. ACTIVASE [Suspect]
     Indication: THROMBOLYSIS

REACTIONS (5)
  - APHASIA [None]
  - HAEMORRHAGE INTRACRANIAL [None]
  - ISCHAEMIC STROKE [None]
  - HEMIPARESIS [None]
  - VAGINAL HAEMORRHAGE [None]
